FAERS Safety Report 13045672 (Version 1)
Quarter: 2016Q4

REPORT INFORMATION
  Report Type: Spontaneous
  Country: US (occurrence: US)
  Receive Date: 20161220
  Receipt Date: 20161220
  Transmission Date: 20170207
  Serious: Yes (Other)
  Sender: FDA-Public Use
  Company Number: None

PATIENT

DRUGS (1)
  1. ANASTROZOLE 1MG [Suspect]
     Active Substance: ANASTROZOLE

REACTIONS (13)
  - Dyspepsia [None]
  - Epistaxis [None]
  - Asthenia [None]
  - Ear pain [None]
  - Dry mouth [None]
  - Diarrhoea [None]
  - Malaise [None]
  - Vomiting [None]
  - Hypophagia [None]
  - Fatigue [None]
  - Weight decreased [None]
  - Nausea [None]
  - Decreased appetite [None]

NARRATIVE: CASE EVENT DATE: 20160707
